FAERS Safety Report 6961376-4 (Version None)
Quarter: 2010Q3

REPORT INFORMATION
  Report Type: 
  Country: None (occurrence: None)
  Receive Date: 20100901
  Receipt Date: 20100715
  Transmission Date: 20110219
  Serious: Yes (Other)
  Sender: FDA-Public Use
  Company Number: PHEH2010US03511

PATIENT
  Sex: Female

DRUGS (6)
  1. AREDIA [Suspect]
     Indication: OSTEOPOROSIS
     Dosage: 90 MG, QMO
     Route: 042
     Dates: start: 20000608, end: 20030401
  2. TAMOXIFEN CITRATE [Concomitant]
  3. LIPITOR [Concomitant]
  4. VIOXX [Concomitant]
  5. SYNTHROID [Concomitant]
  6. COUMADIN [Concomitant]

REACTIONS (3)
  - DEEP VEIN THROMBOSIS [None]
  - NEUROPATHY PERIPHERAL [None]
  - WEIGHT INCREASED [None]
